FAERS Safety Report 5269537-X (Version None)
Quarter: 2007Q1

REPORT INFORMATION
  Report Type: 
  Country: None (occurrence: None)
  Receive Date: 20061213
  Receipt Date: 20031009
  Transmission Date: 20070707
  Serious: Yes (Other)
  Sender: FDA-Public Use
  Company Number: 2003UW13117

PATIENT
  Age: 76 Year
  Sex: Male
  Weight: 62.5964 kg

DRUGS (1)
  1. IRESSA [Suspect]
     Dosage: 250 MG PO
     Route: 048

REACTIONS (3)
  - DIARRHOEA [None]
  - FATIGUE [None]
  - PRODUCTIVE COUGH [None]
